FAERS Safety Report 12954018 (Version 1)
Quarter: 2016Q4

REPORT INFORMATION
  Report Type: Report from Study
  Country: US (occurrence: US)
  Receive Date: 20161118
  Receipt Date: 20161118
  Transmission Date: 20170207
  Serious: Yes (Other)
  Sender: FDA-Public Use
  Company Number: US-UCBSA-2015033073

PATIENT
  Age: 21 Year
  Sex: Female
  Weight: 87 kg

DRUGS (15)
  1. FOLIC ACID. [Concomitant]
     Active Substance: FOLIC ACID
     Indication: PRODUCT USED FOR UNKNOWN INDICATION
     Dosage: 1 MG, ONCE DAILY (QD)
     Route: 048
  2. NORCO [Concomitant]
     Active Substance: ACETAMINOPHEN\HYDROCODONE BITARTRATE
     Indication: PAIN
     Dosage: 5/325 AS NEEDED
     Route: 048
  3. KYTRIL [Concomitant]
     Active Substance: GRANISETRON HYDROCHLORIDE
     Indication: NAUSEA
     Dosage: 1 MG AS NEEDED
     Route: 048
  4. DIAMOX SEQUELS [Concomitant]
     Active Substance: ACETAZOLAMIDE
     Indication: MIGRAINE
     Dosage: 500 MG, ONCE DAILY (QD)
     Route: 048
  5. CERTOLIZUMAB PEGOL [Suspect]
     Active Substance: CERTOLIZUMAB PEGOL
     Indication: CROHN^S DISEASE
     Dosage: 400 MG, MONTHLY (QM)
     Route: 058
     Dates: start: 201509, end: 201604
  6. LAMICTAL [Concomitant]
     Active Substance: LAMOTRIGINE
     Indication: MIGRAINE
     Dosage: 200 MG, 2X/DAY (BID)
     Route: 048
  7. LEVSIN [Concomitant]
     Active Substance: HYOSCYAMINE SULFATE
     Indication: MUSCLE SPASMS
     Dosage: 125 MG, AS NEEDED (PRN)
     Route: 060
  8. ACIPHEX [Concomitant]
     Active Substance: RABEPRAZOLE SODIUM
     Indication: GASTROOESOPHAGEAL REFLUX DISEASE
     Dosage: UNK, 2X/DAY (BID)
     Route: 048
  9. XIFAXAN [Concomitant]
     Active Substance: RIFAXIMIN
     Indication: CROHN^S DISEASE
     Dosage: 550 MG, ONCE DAILY (QD)
     Route: 048
  10. ATACAND [Concomitant]
     Active Substance: CANDESARTAN CILEXETIL
     Indication: MIGRAINE
     Dosage: 8 MG, ONCE DAILY (QD)
     Route: 048
  11. ESTRACE [Concomitant]
     Active Substance: ESTRADIOL
     Indication: HAEMORRHAGE
     Dosage: 1 MG, ONCE DAILY (QD)
     Route: 048
  12. DHE [Concomitant]
     Active Substance: DIHYDROERGOTAMINE
     Indication: MIGRAINE
     Dosage: 1 MG, AS NEEDED (PRN)
     Route: 030
  13. METHOTREXATE. [Concomitant]
     Active Substance: METHOTREXATE
     Indication: CROHN^S DISEASE
     Dosage: 25 MG, WEEKLY (QW)
     Route: 030
  14. SEROQUEL [Concomitant]
     Active Substance: QUETIAPINE FUMARATE
     Indication: SLEEP DISORDER
     Dosage: 50 MG, ONCE DAILY (QD)
     Route: 048
  15. SKELAXIN [Concomitant]
     Active Substance: METAXALONE
     Indication: MYALGIA
     Dosage: 800 MG, 3X/DAY (TID)
     Route: 048

REACTIONS (4)
  - Syringe issue [Unknown]
  - Drug ineffective [Unknown]
  - Dizziness [Recovered/Resolved]
  - Dermatitis psoriasiform [Recovered/Resolved]

NARRATIVE: CASE EVENT DATE: 2015
